FAERS Safety Report 10007622 (Version 2)
Quarter: 2014Q1

REPORT INFORMATION
  Report Type: Spontaneous
  Country: US (occurrence: US)
  Receive Date: 20140313
  Receipt Date: 20140313
  Transmission Date: 20141002
  Serious: No
  Sender: FDA-Public Use
  Company Number: US-BRACCO-010474

PATIENT
  Age: 78 Year
  Sex: Male

DRUGS (1)
  1. GASTROGRAFIN [Suspect]
     Indication: X-RAY WITH CONTRAST UPPER GASTROINTESTINAL TRACT
     Dosage: VIA NASO-GASTRIC TUBE
     Route: 050
     Dates: start: 20140108, end: 20140108

REACTIONS (2)
  - Product colour issue [Unknown]
  - Liquid product physical issue [Unknown]
